FAERS Safety Report 6276370-9 (Version None)
Quarter: 2009Q3

REPORT INFORMATION
  Report Type: 
  Country: None (occurrence: None)
  Receive Date: 20090722
  Receipt Date: 20090708
  Transmission Date: 20100115
  Serious: No
  Sender: FDA-Public Use
  Company Number: PHHY2009MX28098

PATIENT
  Sex: Female

DRUGS (5)
  1. ACLASTA [Suspect]
     Indication: OSTEOPOROSIS
     Dosage: 5MG/100 ML PER YEAR
     Dates: start: 20070629
  2. ACLASTA [Suspect]
     Dosage: 5MG/100ML PER YEAR
     Dates: start: 20080616
  3. EVISTA [Concomitant]
     Indication: OSTEOPOROSIS
     Dosage: 1 TABLET PER DAY
     Dates: start: 20050708
  4. RANISEN [Concomitant]
     Indication: ACIDOSIS
     Dosage: 1 TABLET PER DAY
  5. RIOPAN [Concomitant]
     Indication: ACIDOSIS
     Dosage: 1 PACKAGE PER DAY

REACTIONS (1)
  - BLOOD CALCIUM DECREASED [None]
